FAERS Safety Report 9596729 (Version 2)
Quarter: 2013Q4

REPORT INFORMATION
  Report Type: Spontaneous
  Country: JP (occurrence: JP)
  Receive Date: 20131004
  Receipt Date: 20131101
  Transmission Date: 20140711
  Serious: Yes (Hospitalization)
  Sender: FDA-Public Use
  Company Number: JP-GLAXOSMITHKLINE-B0926853A

PATIENT
  Age: 76 Year
  Sex: Female

DRUGS (6)
  1. VALTREX [Suspect]
     Indication: HERPES ZOSTER
     Dosage: 1000MG THREE TIMES PER DAY
     Route: 048
     Dates: start: 20130924, end: 20130926
  2. METGLUCO [Concomitant]
     Indication: DIABETES MELLITUS
     Dosage: 500MG THREE TIMES PER DAY
     Route: 048
     Dates: start: 20110714, end: 20130926
  3. AMARYL [Concomitant]
     Indication: DIABETES MELLITUS
     Dosage: .5MG PER DAY
     Route: 048
     Dates: start: 20101015, end: 20130926
  4. VICTOZA [Concomitant]
     Route: 058
  5. CINAL [Concomitant]
     Indication: DIABETIC RETINOPATHY
     Dosage: 2IUAX THREE TIMES PER DAY
     Route: 048
     Dates: start: 20100210, end: 20130926
  6. ALINAMIN-F [Concomitant]
     Dosage: 25MG TWICE PER DAY
     Route: 048

REACTIONS (7)
  - Renal failure acute [Unknown]
  - Renal tubular disorder [Recovering/Resolving]
  - Vomiting [Recovering/Resolving]
  - Malaise [Recovering/Resolving]
  - Nausea [Unknown]
  - Oliguria [Unknown]
  - Renal disorder [Recovered/Resolved]
